FAERS Safety Report 7769583-8 (Version None)
Quarter: 2011Q3

REPORT INFORMATION
  Report Type: 
  Country: None (occurrence: None)
  Receive Date: 20110922
  Receipt Date: 20100823
  Transmission Date: 20111222
  Serious: No
  Sender: FDA-Public Use
  Company Number: US-ASTRAZENECA-2007UW11005

PATIENT
  Age: 19475 Day
  Sex: Female
  Weight: 109.3 kg

DRUGS (11)
  1. PROZAC [Concomitant]
     Dates: start: 20020101, end: 20030101
  2. SEROQUEL [Suspect]
     Indication: INSOMNIA
     Dosage: 50 TO 300 MG DAILY
     Route: 048
     Dates: start: 20030724, end: 20060827
  3. SEROQUEL [Suspect]
     Dosage: 25 TO 300 MG
     Route: 048
  4. WELLBUTRIN [Concomitant]
     Dosage: 100 - 350 MG
     Route: 048
     Dates: start: 20030101, end: 20050101
  5. SEROQUEL [Suspect]
     Indication: DEPRESSION
     Dosage: 50 TO 300 MG DAILY
     Route: 048
     Dates: start: 20030724, end: 20060827
  6. ATENOLOL [Concomitant]
     Dosage: 50 - 100 MG
     Route: 048
  7. SEROQUEL [Suspect]
     Dosage: 25 TO 300 MG
     Route: 048
  8. SEROQUEL [Suspect]
     Dosage: 25 TO 300 MG
     Route: 048
  9. TOPAMAX [Concomitant]
     Dosage: 25 - 100 MG
     Route: 048
  10. SEROQUEL [Suspect]
     Indication: BIPOLAR DISORDER
     Dosage: 50 TO 300 MG DAILY
     Route: 048
     Dates: start: 20030724, end: 20060827
  11. HALDOL [Concomitant]
     Dates: start: 20030101

REACTIONS (2)
  - TYPE 2 DIABETES MELLITUS [None]
  - NEPHROLITHIASIS [None]
